FAERS Safety Report 4434786-7 (Version None)
Quarter: 2004Q3

REPORT INFORMATION
  Report Type: 
  Country: None (occurrence: None)
  Receive Date: 20040726
  Receipt Date: 20040305
  Transmission Date: 20050211
  Serious: No
  Sender: FDA-Public Use
  Company Number: USA040259979

PATIENT
  Age: 40 Year
  Sex: Female
  Weight: 64 kg

DRUGS (12)
  1. FORTEO [Suspect]
     Indication: OSTEOPOROSIS
     Dosage: 20 UG/ 1 DAY
     Dates: start: 20040127
  2. DILANTIN [Concomitant]
  3. PREVACID [Concomitant]
  4. XANAX [Concomitant]
  5. COLACE (DOCUSATE SODIUM) [Concomitant]
  6. CITRACAL WITH VITAMIN  D [Concomitant]
  7. DURAGESIC [Concomitant]
  8. LIDODERM (LIDOCAINE) [Concomitant]
  9. FIBERCON (POLYCARBOPHIL CALCIUM) [Concomitant]
  10. IRON SUPPLEMENT [Concomitant]
  11. PREMARIN [Concomitant]
  12. OXYCODONE HCL [Concomitant]

REACTIONS (3)
  - INCREASED APPETITE [None]
  - RASH [None]
  - WEIGHT INCREASED [None]
